FAERS Safety Report 9641155 (Version 1)
Quarter: 2013Q4

REPORT INFORMATION
  Report Type: Spontaneous
  Country: US (occurrence: US)
  Receive Date: 20131023
  Receipt Date: 20131023
  Transmission Date: 20140711
  Serious: Yes (Other)
  Sender: FDA-Public Use
  Company Number: US-ASTRAZENECA-2013SE76452

PATIENT
  Age: 46 Year
  Sex: Male
  Weight: 86.2 kg

DRUGS (8)
  1. CRESTOR [Suspect]
     Indication: BLOOD CHOLESTEROL ABNORMAL
     Route: 048
     Dates: start: 2010
  2. BYSTOLIC [Concomitant]
  3. NIASPAN [Concomitant]
  4. EFFIENT [Concomitant]
  5. FORMIN [Concomitant]
  6. ASPIRIN [Concomitant]
  7. NORVASC [Concomitant]
  8. MYCARDIS [Concomitant]

REACTIONS (6)
  - Myocardial infarction [Unknown]
  - Tenderness [Unknown]
  - Myalgia [Unknown]
  - Asthenia [Unknown]
  - Muscle disorder [Unknown]
  - Headache [Unknown]
